FAERS Safety Report 6676165-8 (Version None)
Quarter: 2010Q2

REPORT INFORMATION
  Report Type: 
  Country: None (occurrence: None)
  Receive Date: 20100412
  Receipt Date: 20100406
  Transmission Date: 20101027
  Serious: Yes (Hospitalization)
  Sender: FDA-Public Use
  Company Number: CH-WYE-G05898510

PATIENT
  Age: 79 Year
  Sex: Female

DRUGS (8)
  1. PIPERACILLIN AND TAZOBACTAM [Suspect]
     Indication: NECROSIS
     Route: 042
     Dates: start: 20100315, end: 20100317
  2. TRACLEER [Concomitant]
     Route: 048
  3. ADALAT [Concomitant]
     Route: 048
  4. OMEPRAZOLE [Concomitant]
     Route: 048
  5. PLAVIX [Concomitant]
     Route: 048
  6. ZESTRIL [Concomitant]
     Route: 048
  7. TILUR [Concomitant]
     Route: 048
  8. DAFALGAN [Concomitant]
     Route: 048

REACTIONS (3)
  - ACUTE PSYCHOSIS [None]
  - AGITATION [None]
  - ANXIETY [None]
